FAERS Safety Report 8527003 (Version 2)
Quarter: 2014Q2

REPORT INFORMATION
  Report Type: Spontaneous
  Country: US (occurrence: US)
  Receive Date: 20120424
  Receipt Date: 20140512
  Transmission Date: 20141212
  Serious: Yes (Hospitalization)
  Sender: FDA-Public Use
  Company Number: US-BAYER-2012-038405

PATIENT
  Age: 32 Year
  Sex: Female

DRUGS (4)
  1. YASMIN [Suspect]
     Dosage: UNK
     Dates: start: 20090101, end: 20091018
  2. OCELLA [Suspect]
     Dosage: UNK
     Dates: start: 20090101, end: 20091018
  3. YAZ [Suspect]
     Dosage: UNK
     Dates: start: 20090101, end: 20091018
  4. LISINOPRIL [Concomitant]

REACTIONS (7)
  - Deep vein thrombosis [None]
  - Pain [None]
  - Injury [None]
  - Emotional distress [None]
  - Depression [None]
  - Fear of death [None]
  - Nervousness [None]
